FAERS Safety Report 4977237-6 (Version None)
Quarter: 2006Q2

REPORT INFORMATION
  Report Type: 
  Country: None (occurrence: None)
  Receive Date: 20060419
  Receipt Date: 20050406
  Transmission Date: 20061013
  Serious: Yes (Hospitalization)
  Sender: FDA-Public Use
  Company Number: US-MERCK-0504USA01083

PATIENT
  Age: 79 Year
  Sex: Female
  Weight: 65 kg

DRUGS (8)
  1. VIOXX [Suspect]
     Indication: ARTHRITIS
     Route: 048
     Dates: start: 20000106, end: 20000306
  2. VIOXX [Suspect]
     Route: 048
     Dates: start: 20020613, end: 20040908
  3. LIPITOR [Concomitant]
     Route: 065
  4. PROTONIX [Concomitant]
     Route: 065
  5. ALLOPURINOL [Concomitant]
     Route: 065
  6. COZAAR [Concomitant]
     Route: 065
  7. DIGITEK [Concomitant]
     Route: 065
  8. LEVOTHROID [Concomitant]
     Route: 065

REACTIONS (14)
  - BACK PAIN [None]
  - BALANCE DISORDER [None]
  - BRADYCARDIA [None]
  - CELLULITIS [None]
  - CEREBROVASCULAR ACCIDENT [None]
  - COSTOCHONDRITIS [None]
  - DEPRESSED LEVEL OF CONSCIOUSNESS [None]
  - HEAD INJURY [None]
  - HYPERKALAEMIA [None]
  - INJURY [None]
  - MUSCULOSKELETAL CHEST PAIN [None]
  - PELVIC MASS [None]
  - SKIN LACERATION [None]
  - SYNCOPE [None]
